FAERS Safety Report 7425161-1 (Version None)
Quarter: 2011Q2

REPORT INFORMATION
  Report Type: 
  Country: None (occurrence: None)
  Receive Date: 20110420
  Receipt Date: 20110406
  Transmission Date: 20111010
  Serious: Yes (Hospitalization)
  Sender: FDA-Public Use
  Company Number: DK-JNJFOC-20110403327

PATIENT
  Sex: Female
  Weight: 90 kg

DRUGS (2)
  1. REMICADE [Suspect]
     Indication: CROHN'S DISEASE
     Dosage: INDUCTION WEEK 0, 2, 6, AND THEN EVERY 8 WEEKS
     Route: 042
  2. REMICADE [Suspect]
     Route: 042

REACTIONS (1)
  - GLOMERULONEPHRITIS MEMBRANOUS [None]
